FAERS Safety Report 5331322-8 (Version None)
Quarter: 2007Q2

REPORT INFORMATION
  Report Type: 
  Country: None (occurrence: None)
  Receive Date: 20070301
  Receipt Date: 20060711
  Transmission Date: 20071010
  Serious: Yes (Other)
  Sender: FDA-Public Use
  Company Number: 2854

PATIENT
  Age: 14 Year
  Sex: Male
  Weight: 61.2356 kg

DRUGS (2)
  1. AMNESTEEM [Suspect]
     Indication: ACNE
     Dosage: 40 MG, QHS, PO
     Route: 048
     Dates: start: 20060123, end: 20060524
  2. AMNESTEEM [Suspect]
     Indication: ACNE
     Dosage: 20 MG, QAM, PO
     Route: 048
     Dates: start: 20060123, end: 20060524

REACTIONS (1)
  - ASPARTATE AMINOTRANSFERASE INCREASED [None]
